FAERS Safety Report 4522003-9 (Version None)
Quarter: 2004Q4

REPORT INFORMATION
  Report Type: 
  Country: None (occurrence: None)
  Receive Date: 20041209
  Receipt Date: 20040915
  Transmission Date: 20050328
  Serious: Yes (Other)
  Sender: FDA-Public Use
  Company Number: PHNR2004AU01433

PATIENT
  Age: 20 Year
  Sex: Female

DRUGS (2)
  1. SYNTOCINON [Suspect]
     Dosage: 5 IU
     Route: 042
     Dates: start: 20040914, end: 20040914
  2. SYNTOCINON [Suspect]
     Dates: start: 20040914, end: 20040914

REACTIONS (2)
  - PHARMACEUTICAL PRODUCT COMPLAINT [None]
  - POSTPARTUM HAEMORRHAGE [None]
